FAERS Safety Report 17467335 (Version 1)
Quarter: 2020Q1

REPORT INFORMATION
  Report Type: Spontaneous
  Country: US (occurrence: US)
  Receive Date: 20200227
  Receipt Date: 20200227
  Transmission Date: 20200409
  Serious: No
  Sender: FDA-Public Use
  Company Number: US-PFIZER INC-2020085533

PATIENT
  Sex: Female

DRUGS (1)
  1. ZIPRASIDONE HCL [Suspect]
     Active Substance: ZIPRASIDONE HYDROCHLORIDE
     Dosage: 80 MG, 2X/DAY

REACTIONS (3)
  - Dysphagia [Unknown]
  - Therapeutic product effect decreased [Unknown]
  - Wrong technique in product usage process [Unknown]
